FAERS Safety Report 17826601 (Version 2)
Quarter: 2020Q3

REPORT INFORMATION
  Report Type: Spontaneous
  Country: US (occurrence: US)
  Receive Date: 20200526
  Receipt Date: 20200921
  Transmission Date: 20201102
  Serious: Yes (Hospitalization, Other)
  Sender: FDA-Public Use
  Company Number: US-009507513-2005USA007366

PATIENT
  Age: 66 Year
  Sex: Male

DRUGS (4)
  1. DISULFIRAM. [Suspect]
     Active Substance: DISULFIRAM
     Indication: METASTATIC MALIGNANT MELANOMA
     Dosage: 250 MILLIGRAM, QD
  2. KEYTRUDA [Suspect]
     Active Substance: PEMBROLIZUMAB
     Indication: METASTATIC MALIGNANT MELANOMA
     Dosage: UNK
  3. DISULFIRAM. [Suspect]
     Active Substance: DISULFIRAM
     Dosage: 500 UNK
  4. INTRON A [Suspect]
     Active Substance: INTERFERON ALFA-2B
     Indication: METASTATIC MALIGNANT MELANOMA
     Dosage: HIGH DOSE FOR 54 WEEKS

REACTIONS (3)
  - Posterior reversible encephalopathy syndrome [Recovered/Resolved]
  - Adverse event [Unknown]
  - Fatigue [Unknown]
